FAERS Safety Report 4599617-3 (Version None)
Quarter: 2005Q1

REPORT INFORMATION
  Report Type: 
  Country: None (occurrence: None)
  Receive Date: 20050303
  Receipt Date: 20050211
  Transmission Date: 20050727
  Serious: Yes (Hospitalization, Other)
  Sender: FDA-Public Use
  Company Number: US_001052535

PATIENT
  Age: 41 Year
  Sex: Female
  Weight: 54 kg

DRUGS (14)
  1. LENTE ILETIN (BEEF-PORK) INSULIN ZINC [Suspect]
     Indication: DIABETES MELLITUS
  2. ILETIN-BEEF/PORK REGULAR INSULIN (INSULIN, ANIMAL) [Suspect]
     Indication: DIABETES MELLITUS
  3. NPH ILETIN I (BEEF-PORK) [Suspect]
     Indication: DIABETES MELLITUS
  4. INSULIN [Suspect]
     Indication: DIABETES MELLITUS
     Dates: start: 19610101
  5. ILETIN-PORK NPH INSULIN (INSULIN, ANIMAL) [Suspect]
  6. REGULAR ILETIN II (PORK) [Suspect]
  7. HUMULIN-HUMAN INSULIN (RDNA) (HU [Suspect]
     Indication: DIABETES MELLITUS
     Dates: start: 19830101, end: 19830101
  8. HUMALOG [Suspect]
     Indication: DIABETES MELLITUS INSULIN-DEPENDENT
     Dosage: 3 U
     Dates: start: 20030101
  9. HUMULIN R [Suspect]
     Indication: DIABETES MELLITUS
     Dates: start: 19820101
  10. HUMULIN L [Suspect]
     Indication: DIABETES MELLITUS
     Dates: start: 19820101
  11. LANTUS [Concomitant]
  12. TOPROL-XL [Concomitant]
  13. LISINOPRIL [Concomitant]
  14. LASIX [Concomitant]

REACTIONS (17)
  - AMNESIA [None]
  - CONVULSION [None]
  - COUGH [None]
  - DIABETES MELLITUS INADEQUATE CONTROL [None]
  - DIALYSIS [None]
  - DYSPNOEA [None]
  - EXTRASYSTOLES [None]
  - EYE DISORDER [None]
  - FOOT AMPUTATION [None]
  - GASTROINTESTINAL OEDEMA [None]
  - HYPERTENSION [None]
  - INJECTION SITE OEDEMA [None]
  - INJECTION SITE PRURITUS [None]
  - PALPITATIONS [None]
  - RASH [None]
  - RENAL TRANSPLANT [None]
  - WEIGHT INCREASED [None]
